FAERS Safety Report 9292833 (Version 2)
Quarter: 2013Q2

REPORT INFORMATION
  Report Type: Spontaneous
  Country: US (occurrence: None)
  Receive Date: 20130513
  Receipt Date: 20130612
  Transmission Date: 20140414
  Serious: Yes (Hospitalization)
  Sender: FDA-Public Use
  Company Number: ACO_35863_2013

PATIENT
  Age: 50 Year
  Sex: Male

DRUGS (1)
  1. AMPYRA [Suspect]
     Indication: SPINAL CORD INJURY
     Dosage: 10MG, Q 12 HRS, ORAL
     Route: 048
     Dates: start: 20120118

REACTIONS (3)
  - Vomiting [None]
  - Dizziness [None]
  - Nausea [None]
